FAERS Safety Report 7684667-0 (Version None)
Quarter: 2011Q3

REPORT INFORMATION
  Report Type: 
  Country: None (occurrence: None)
  Receive Date: 20110805
  Receipt Date: 20110722
  Transmission Date: 20111222
  Serious: Yes (Hospitalization)
  Sender: FDA-Public Use
  Company Number: 2011PROUSA00492

PATIENT
  Age: 69 Year
  Sex: Male
  Weight: 90.7 kg

DRUGS (5)
  1. PROVENGE [Suspect]
  2. TRAMADOL HCL [Concomitant]
  3. PROVENGE [Suspect]
     Indication: PROSTATE CANCER METASTATIC
     Dosage: 250 ML, SINGLE, INTRAVENOUS
     Route: 042
     Dates: start: 20110617, end: 20110617
  4. PROVENGE [Suspect]
     Indication: PROSTATE CANCER METASTATIC
     Dosage: 250 ML, SINGLE, INTRAVENOUS
     Route: 042
     Dates: start: 20110701, end: 20110701
  5. TYLENOL-500 [Concomitant]

REACTIONS (9)
  - PAIN [None]
  - PANCYTOPENIA [None]
  - DECREASED APPETITE [None]
  - ARTHRALGIA [None]
  - ASTHENIA [None]
  - FAILURE TO THRIVE [None]
  - PELVIC PAIN [None]
  - BACK PAIN [None]
  - FATIGUE [None]
